FAERS Safety Report 7152159-3 (Version None)
Quarter: 2010Q4

REPORT INFORMATION
  Report Type: 
  Country: None (occurrence: None)
  Receive Date: 20101213
  Receipt Date: 20101202
  Transmission Date: 20110411
  Serious: Yes (Hospitalization)
  Sender: FDA-Public Use
  Company Number: 2008BI010662

PATIENT
  Age: 55 Year
  Sex: Female

DRUGS (1)
  1. AVONEX [Suspect]
     Indication: MULTIPLE SCLEROSIS
     Route: 030
     Dates: start: 20050219

REACTIONS (9)
  - ABDOMINAL INJURY [None]
  - APHAGIA [None]
  - DEVICE FAILURE [None]
  - FALL [None]
  - HIP FRACTURE [None]
  - JOINT INJURY [None]
  - MEDICAL DEVICE PAIN [None]
  - POST PROCEDURAL HAEMORRHAGE [None]
  - RECTAL PROLAPSE [None]
